FAERS Safety Report 10975691 (Version 1)
Quarter: 2015Q2

REPORT INFORMATION
  Report Type: Spontaneous
  Country: US (occurrence: US)
  Receive Date: 20150401
  Receipt Date: 20150401
  Transmission Date: 20150821
  Serious: Yes (Death, Other)
  Sender: FDA-Public Use
  Company Number: US-BAYER-2015-060351

PATIENT
  Age: 20 Year
  Sex: Female

DRUGS (7)
  1. DIPHENHYDRAMINE HYDROCHLORIDE. [Suspect]
     Active Substance: DIPHENHYDRAMINE HYDROCHLORIDE
  2. ROMILAR [Suspect]
     Active Substance: DEXTROMETHORPHAN HYDROBROMIDE
  3. CODEINE [Suspect]
     Active Substance: CODEINE
  4. CITALOPRAM [Suspect]
     Active Substance: CITALOPRAM HYDROBROMIDE
  5. HYDROCODONE [Suspect]
     Active Substance: HYDROCODONE
  6. MORPHINE [Suspect]
     Active Substance: MORPHINE
  7. HEROIN [Suspect]
     Active Substance: DIACETYLMORPHINE

REACTIONS (5)
  - Overdose [Fatal]
  - Drug abuse [None]
  - Toxicity to various agents [Fatal]
  - Bronchopneumonia [None]
  - Pulmonary oedema [None]
